FAERS Safety Report 9977277 (Version 1)
Quarter: 2014Q1

REPORT INFORMATION
  Report Type: Report from Study
  Country: US (occurrence: US)
  Receive Date: 20140306
  Receipt Date: 20140306
  Transmission Date: 20141002
  Serious: No
  Sender: FDA-Public Use
  Company Number: US-ABBVIE-13P-163-1168557-00

PATIENT
  Age: 54 Year
  Sex: Female

DRUGS (15)
  1. HUMIRA [Suspect]
     Indication: RHEUMATOID ARTHRITIS
     Dates: start: 201011
  2. METHOTREXATE [Concomitant]
     Indication: RHEUMATOID ARTHRITIS
  3. CELEBREX [Concomitant]
     Indication: RHEUMATOID ARTHRITIS
  4. EFFEXOR [Concomitant]
     Indication: DEPRESSION
  5. LEXAPRO [Concomitant]
     Indication: DEPRESSION
  6. TRAZADONE [Concomitant]
     Indication: NECK PAIN
  7. LEUCOVORIN [Concomitant]
     Indication: MOUTH ULCERATION
  8. FAMARA [Concomitant]
     Indication: BREAST CANCER
  9. ROBAXIN [Concomitant]
     Indication: MUSCLE SPASMS
  10. METFORMIN [Concomitant]
     Indication: DIABETES MELLITUS
     Dates: start: 201010
  11. ASPIRIN [Concomitant]
     Indication: THROMBOSIS PROPHYLAXIS
  12. CALCIUM WITH VITAMIN D [Concomitant]
     Indication: VITAMIN SUPPLEMENTATION
  13. SUDAFED [Concomitant]
     Indication: SEASONAL ALLERGY
  14. ZYRTEC [Concomitant]
     Indication: SEASONAL ALLERGY
  15. FLONASE [Concomitant]
     Indication: SEASONAL ALLERGY

REACTIONS (1)
  - Neck pain [Recovered/Resolved]
